FAERS Safety Report 9154637 (Version 3)
Quarter: 2013Q2

REPORT INFORMATION
  Report Type: Report from Study
  Country: CA (occurrence: CA)
  Receive Date: 20130311
  Receipt Date: 20130523
  Transmission Date: 20140414
  Serious: Yes (Other)
  Sender: FDA-Public Use
  Company Number: CA-ABBOTT-13P-028-1058553-00

PATIENT
  Sex: Male
  Weight: 90.8 kg

DRUGS (1)
  1. LUPRON DEPOT [Suspect]
     Indication: PROSTATE CANCER
     Dosage: 3 MONTH DEPOT
     Dates: start: 20101202

REACTIONS (3)
  - Malignant neoplasm progression [Unknown]
  - Metastases to bone marrow [Unknown]
  - Platelet count decreased [Not Recovered/Not Resolved]
